FAERS Safety Report 14609658 (Version 1)
Quarter: 2018Q1

REPORT INFORMATION
  Report Type: Spontaneous
  Country: US (occurrence: US)
  Receive Date: 20180306
  Receipt Date: 20180306
  Transmission Date: 20180509
  Serious: Yes (Life-Threatening, Other)
  Sender: FDA-Public Use
  Company Number: None

PATIENT
  Age: 36 Year
  Sex: Female

DRUGS (2)
  1. ZOLPIDEM TARTRATE. [Suspect]
     Active Substance: ZOLPIDEM TARTRATE
     Indication: INSOMNIA
     Route: 048
     Dates: start: 20130106
  2. ZOLPIDEM TARTRATE. [Suspect]
     Active Substance: ZOLPIDEM TARTRATE
     Indication: ANXIETY
     Route: 048
     Dates: start: 20130106

REACTIONS (6)
  - Asthenia [None]
  - Confusional state [None]
  - Restlessness [None]
  - Somnambulism [None]
  - Heart rate increased [None]
  - Chest discomfort [None]

NARRATIVE: CASE EVENT DATE: 20130107
